FAERS Safety Report 7918937-5 (Version None)
Quarter: 2011Q4

REPORT INFORMATION
  Report Type: 
  Country: None (occurrence: None)
  Receive Date: 20111116
  Receipt Date: 20111110
  Transmission Date: 20120403
  Serious: Yes (Death)
  Sender: FDA-Public Use
  Company Number: IL-CELGENEUS-082-50794-11111810

PATIENT
  Age: 67 Year
  Sex: Male

DRUGS (2)
  1. VIDAZA [Suspect]
     Dosage: 150 MILLIGRAM
     Route: 065
  2. VIDAZA [Suspect]
     Route: 065

REACTIONS (1)
  - LUNG INFECTION [None]
